FAERS Safety Report 16650318 (Version 2)
Quarter: 2021Q1

REPORT INFORMATION
  Report Type: Report from Study
  Country: US (occurrence: US)
  Receive Date: 20190731
  Receipt Date: 20210122
  Transmission Date: 20210419
  Serious: No
  Sender: FDA-Public Use
  Company Number: US-BRISTOL-MYERS SQUIBB COMPANY-BMS-2019-068737

PATIENT
  Sex: Male
  Weight: 92.99 kg

DRUGS (1)
  1. APIXABAN [Suspect]
     Active Substance: APIXABAN
     Indication: PRODUCT USED FOR UNKNOWN INDICATION
     Dosage: 5 MILLIGRAM

REACTIONS (4)
  - Pain [Unknown]
  - Product contamination physical [Unknown]
  - Muscular weakness [Unknown]
  - Poor quality product administered [Unknown]
